FAERS Safety Report 24532975 (Version 1)
Quarter: 2024Q4

REPORT INFORMATION
  Report Type: Spontaneous
  Country: US (occurrence: None)
  Receive Date: 20241020
  Receipt Date: 20241020
  Transmission Date: 20250115
  Serious: Yes (Life-Threatening, Hospitalization, Disabling, Other)
  Sender: Public
  Company Number: None

PATIENT
  Age: 25 Year
  Sex: Male
  Weight: 67.5 kg

DRUGS (18)
  1. OXBRYTA [Suspect]
     Active Substance: VOXELOTOR
     Indication: Sickle cell anaemia
     Dosage: OTHER QUANTITY : 3 TABLET(S);?
     Route: 048
  2. HYDROXYUREA [Concomitant]
     Active Substance: HYDROXYUREA
  3. FOLIC ACID [Concomitant]
     Active Substance: FOLIC ACID
  4. allegra, [Concomitant]
  5. IRON [Concomitant]
     Active Substance: IRON
  6. PEPCID [Concomitant]
     Active Substance: FAMOTIDINE
  7. OMEPRAZOLE [Concomitant]
     Active Substance: OMEPRAZOLE
  8. TYLENOL [Concomitant]
     Active Substance: ACETAMINOPHEN
  9. cymbalta, [Concomitant]
  10. ALBUTEROL [Concomitant]
     Active Substance: ALBUTEROL
  11. VITAMIN D [Concomitant]
     Active Substance: VITAMIN D NOS
  12. Flonase, [Concomitant]
  13. metoprolol, [Concomitant]
  14. ZOFRAN [Concomitant]
     Active Substance: ONDANSETRON HYDROCHLORIDE
  15. MORPHINE [Concomitant]
     Active Substance: MORPHINE
  16. DILAUDID [Concomitant]
  17. TORADOL [Concomitant]
     Active Substance: KETOROLAC TROMETHAMINE
  18. FLEXERIL [Concomitant]
     Active Substance: CYCLOBENZAPRINE HYDROCHLORIDE

REACTIONS (9)
  - Pneumonia [None]
  - Sepsis [None]
  - Staphylococcal infection [None]
  - Acute chest syndrome [None]
  - Gastric ulcer [None]
  - Vasculitis necrotising [None]
  - Heart rate irregular [None]
  - Depression [None]
  - Sickle cell anaemia with crisis [None]

NARRATIVE: CASE EVENT DATE: 20240218
